FAERS Safety Report 8038705-6 (Version None)
Quarter: 2012Q1

REPORT INFORMATION
  Report Type: 
  Country: None (occurrence: None)
  Receive Date: 20120111
  Receipt Date: 20111202
  Transmission Date: 20120608
  Serious: No
  Sender: FDA-Public Use
  Company Number: US-AMGEN-USASP2011064240

PATIENT
  Age: 48 Year
  Sex: Female

DRUGS (1)
  1. ENBREL [Suspect]
     Indication: PSORIATIC ARTHROPATHY
     Dosage: 50 MG, QWK
     Dates: start: 20111104, end: 20111111

REACTIONS (5)
  - PRODUCTIVE COUGH [None]
  - OROPHARYNGEAL PAIN [None]
  - BODY TEMPERATURE INCREASED [None]
  - DRUG INEFFECTIVE [None]
  - LOWER RESPIRATORY TRACT INFECTION [None]
